FAERS Safety Report 25831052 (Version 1)
Quarter: 2025Q3

REPORT INFORMATION
  Report Type: Spontaneous
  Country: US (occurrence: US)
  Receive Date: 20250922
  Receipt Date: 20250922
  Transmission Date: 20251020
  Serious: No
  Sender: MYLAN
  Company Number: US-MYLANLABS-2025M1078496

PATIENT
  Sex: Female

DRUGS (4)
  1. SOMA [Suspect]
     Active Substance: CARISOPRODOL
     Indication: Pain
  2. SOMA [Suspect]
     Active Substance: CARISOPRODOL
     Route: 065
  3. SOMA [Suspect]
     Active Substance: CARISOPRODOL
     Route: 065
  4. SOMA [Suspect]
     Active Substance: CARISOPRODOL

REACTIONS (1)
  - Drug ineffective [Unknown]
